FAERS Safety Report 6601276-2 (Version None)
Quarter: 2010Q1

REPORT INFORMATION
  Report Type: 
  Country: None (occurrence: None)
  Receive Date: 20100225
  Receipt Date: 20100212
  Transmission Date: 20100710
  Serious: Yes (Hospitalization)
  Sender: FDA-Public Use
  Company Number: US-PFIZER INC-2010022165

PATIENT
  Sex: Female
  Weight: 50.794 kg

DRUGS (2)
  1. GEODON [Suspect]
     Indication: MOOD SWINGS
     Dates: start: 20100209, end: 20100209
  2. SELEGILINE [Concomitant]
     Indication: DEPRESSION
     Route: 062

REACTIONS (3)
  - ABDOMINAL PAIN [None]
  - DIARRHOEA [None]
  - MALAISE [None]
